FAERS Safety Report 15990957 (Version 1)
Quarter: 2019Q1

REPORT INFORMATION
  Report Type: Spontaneous
  Country: US (occurrence: US)
  Receive Date: 20190221
  Receipt Date: 20190221
  Transmission Date: 20190418
  Serious: Yes (Disabling)
  Sender: FDA-Public Use
  Company Number: None

PATIENT
  Age: 75 Year
  Sex: Female
  Weight: 47.25 kg

DRUGS (1)
  1. PROLIA [Suspect]
     Active Substance: DENOSUMAB
     Indication: OSTEOPOROSIS
     Dosage: ?          OTHER ROUTE:INJECTION EVERY SIX MONTHS IN DR. OFFICE?

REACTIONS (3)
  - Osteonecrosis of jaw [None]
  - Exposed bone in jaw [None]
  - Aphthous ulcer [None]

NARRATIVE: CASE EVENT DATE: 20181231
